FAERS Safety Report 5840438-9 (Version None)
Quarter: 2008Q3

REPORT INFORMATION
  Report Type: 
  Country: None (occurrence: None)
  Receive Date: 20080811
  Receipt Date: 20080801
  Transmission Date: 20090109
  Serious: Yes (Hospitalization)
  Sender: FDA-Public Use
  Company Number: AU-ABBOTT-08P-008-0468739-00

PATIENT
  Sex: Female

DRUGS (3)
  1. HUMIRA [Suspect]
     Indication: RHEUMATOID ARTHRITIS
     Route: 058
     Dates: start: 20060401
  2. HUMIRA [Suspect]
     Route: 058
     Dates: end: 20080301
  3. METHOTREXATE [Concomitant]
     Indication: DRUG USE FOR UNKNOWN INDICATION
     Route: 058

REACTIONS (5)
  - ABDOMINAL PAIN LOWER [None]
  - CHEST PAIN [None]
  - DYSPEPSIA [None]
  - ERUCTATION [None]
  - LUPUS-LIKE SYNDROME [None]
